FAERS Safety Report 18636806 (Version 1)
Quarter: 2020Q4

REPORT INFORMATION
  Report Type: Spontaneous
  Country: CN (occurrence: CN)
  Receive Date: 20201219
  Receipt Date: 20201219
  Transmission Date: 20210114
  Serious: Yes (Other)
  Sender: FDA-Public Use
  Company Number: CN-JNJFOC-20201230236

PATIENT
  Age: 63 Year
  Sex: Male
  Weight: 71 kg

DRUGS (2)
  1. LOSEC [Concomitant]
     Active Substance: OMEPRAZOLE
  2. RIVAROXABAN [Suspect]
     Active Substance: RIVAROXABAN
     Indication: DISSEMINATED INTRAVASCULAR COAGULATION
     Dosage: 10 MG, QD
     Route: 048
     Dates: start: 20201203, end: 20201208

REACTIONS (5)
  - Rash erythematous [Not Recovered/Not Resolved]
  - Dermatitis bullous [Not Recovered/Not Resolved]
  - Product use in unapproved indication [Unknown]
  - Rash papular [Not Recovered/Not Resolved]
  - Off label use [Unknown]

NARRATIVE: CASE EVENT DATE: 20201203
